FAERS Safety Report 4492635-5 (Version None)
Quarter: 2004Q4

REPORT INFORMATION
  Report Type: 
  Country: None (occurrence: None)
  Receive Date: 20041029
  Receipt Date: 20041022
  Transmission Date: 20050328
  Serious: Yes (Hospitalization)
  Sender: FDA-Public Use
  Company Number: 200410678BNE

PATIENT
  Age: 66 Year
  Sex: Male

DRUGS (3)
  1. CIPROFLOXACIN [Suspect]
     Indication: LOWER RESPIRATORY TRACT INFECTION
     Dosage: 250 MG, BID, ORAL
     Route: 048
     Dates: start: 20040930, end: 20041001
  2. ENALAPRIL [Concomitant]
  3. ASPIRIN [Concomitant]

REACTIONS (1)
  - STATUS EPILEPTICUS [None]
